FAERS Safety Report 8551059 (Version 2)
Quarter: 2013Q4

REPORT INFORMATION
  Report Type: Spontaneous
  Country: US (occurrence: US)
  Receive Date: 20120508
  Receipt Date: 20131028
  Transmission Date: 20140711
  Serious: Yes (Hospitalization, Other)
  Sender: FDA-Public Use
  Company Number: US-BAYER-2012-043651

PATIENT
  Age: 30 Year
  Sex: Female
  Weight: 111.57 kg

DRUGS (3)
  1. MIRENA [Suspect]
     Indication: CONTRACEPTION
     Dosage: 20 MCG/24HR, CONT
     Route: 015
     Dates: start: 200802, end: 201010
  2. IBUPROFEN [Concomitant]
     Indication: MIGRAINE
     Dosage: 800 MG, UNK
     Dates: start: 2007
  3. XANAX [Concomitant]
     Indication: ANXIETY
     Dosage: UNK
     Dates: start: 2009, end: 2012

REACTIONS (20)
  - Uterine perforation [None]
  - Vaginal haemorrhage [None]
  - Nephrolithiasis [None]
  - Urinary tract infection [None]
  - Abdominal pain [None]
  - Post procedural discomfort [None]
  - Weight increased [None]
  - Menstruation irregular [None]
  - Injury [None]
  - Vomiting [None]
  - Oedema peripheral [None]
  - Weight loss poor [None]
  - Sinusitis [None]
  - Emotional distress [None]
  - Anxiety [None]
  - Depression [None]
  - Panic attack [None]
  - Back pain [None]
  - Pitted keratolysis [None]
  - Procedural complication [None]
